FAERS Safety Report 20889603 (Version 1)
Quarter: 2022Q2

REPORT INFORMATION
  Report Type: Report from Study
  Country: US (occurrence: US)
  Receive Date: 20220530
  Receipt Date: 20220530
  Transmission Date: 20220721
  Serious: Yes (Other)
  Sender: FDA-Public Use
  Company Number: US-BRISTOL-MYERS SQUIBB COMPANY-2022-025417

PATIENT
  Age: 57 Year
  Sex: Male
  Weight: 86.18 kg

DRUGS (3)
  1. REVLIMID [Suspect]
     Active Substance: LENALIDOMIDE
     Indication: Plasma cell myeloma
     Route: 048
  2. REVLIMID [Suspect]
     Active Substance: LENALIDOMIDE
     Route: 048
  3. ASPIRIN [Concomitant]
     Active Substance: ASPIRIN
     Indication: Product used for unknown indication
     Dosage: BLOOD THINNER
     Route: 065

REACTIONS (5)
  - Diarrhoea [Unknown]
  - Insomnia [Unknown]
  - Fluid retention [Unknown]
  - Muscle spasms [Unknown]
  - Asthenia [Unknown]
